FAERS Safety Report 20931516 (Version 2)
Quarter: 2022Q2

REPORT INFORMATION
  Report Type: Spontaneous
  Country: US (occurrence: US)
  Receive Date: 20220608
  Receipt Date: 20220629
  Transmission Date: 20220721
  Serious: No
  Sender: FDA-Public Use
  Company Number: US-BRISTOL-MYERS SQUIBB COMPANY-2022-052776

PATIENT
  Age: 72 Year
  Sex: Male

DRUGS (2)
  1. ORENCIA [Suspect]
     Active Substance: ABATACEPT
     Indication: Rheumatoid arthritis
     Dosage: FREQUENCY: INFUSE 750 MG INTRAVENOUSLY AT WEEK 0, 2 , 4, THEN EVERY 4 WEEKS THEREAFTER. ?STRENGTH: 2
     Route: 042
     Dates: start: 20220602
  2. ORENCIA [Suspect]
     Active Substance: ABATACEPT
     Route: 042
     Dates: start: 20220526

REACTIONS (2)
  - Joint swelling [Unknown]
  - Pain [Unknown]
